FAERS Safety Report 8100374-4 (Version None)
Quarter: 2012Q1

REPORT INFORMATION
  Report Type: 
  Country: None (occurrence: None)
  Receive Date: 20120129
  Receipt Date: 20111117
  Transmission Date: 20120608
  Serious: No
  Sender: FDA-Public Use
  Company Number: US-ABBOTT-11P-163-0874857-00

PATIENT
  Age: 47 Year
  Sex: Female

DRUGS (5)
  1. LOTREL [Concomitant]
     Indication: HYPERTENSION
     Dosage: 5/10 MG - ONE EVERY OTHER DAY
     Route: 048
  2. TOPROL-XL [Concomitant]
     Indication: HYPERTENSION
     Route: 048
  3. CRESTOR [Concomitant]
     Indication: BLOOD CHOLESTEROL INCREASED
     Route: 048
  4. HUMIRA [Suspect]
     Indication: RHEUMATOID ARTHRITIS
     Dates: start: 20110401
  5. M.V.I. [Concomitant]
     Indication: ROUTINE HEALTH MAINTENANCE

REACTIONS (2)
  - INJECTION SITE PAIN [None]
  - DEVICE MALFUNCTION [None]
